FAERS Safety Report 15395285 (Version 1)
Quarter: 2018Q3

REPORT INFORMATION
  Report Type: Spontaneous
  Country: US (occurrence: US)
  Receive Date: 20180918
  Receipt Date: 20180918
  Transmission Date: 20181010
  Serious: No
  Sender: FDA-Public Use
  Company Number: US-PFIZER INC-2018374498

PATIENT
  Sex: Female

DRUGS (1)
  1. MERREM [Suspect]
     Active Substance: MEROPENEM
     Indication: SEPSIS
     Dosage: UNK

REACTIONS (1)
  - Hallucination, auditory [Recovered/Resolved]
